FAERS Safety Report 5783093-9 (Version None)
Quarter: 2008Q2

REPORT INFORMATION
  Report Type: 
  Country: None (occurrence: None)
  Receive Date: 20080619
  Receipt Date: 20080606
  Transmission Date: 20081010
  Serious: Yes (Life-Threatening, Other)
  Sender: FDA-Public Use
  Company Number: 2008AL006709

PATIENT
  Age: 61 Year
  Sex: Female

DRUGS (9)
  1. HYDROCORTISONE 1%-P CREAM [Suspect]
     Dosage: 10 MG; HS
     Dates: start: 20080525, end: 20080530
  2. ROSUVASTATIN [Concomitant]
  3. ATENOLOL [Concomitant]
  4. CELECOXIB [Concomitant]
  5. BENDROFLUMETHIAZIDE [Concomitant]
  6. FLUDROCORTISONE ACETATE [Concomitant]
  7. LEVOTHYROXINE SODIUM [Concomitant]
  8. ACETAMINOPHEN W/ CODEINE [Concomitant]
  9. COD LIVER OIL [Concomitant]

REACTIONS (5)
  - ANGER [None]
  - CRYING [None]
  - DEPRESSED MOOD [None]
  - HEADACHE [None]
  - MALAISE [None]
